FAERS Safety Report 6800666-2 (Version None)
Quarter: 2010Q2

REPORT INFORMATION
  Report Type: 
  Country: None (occurrence: None)
  Receive Date: 20100629
  Receipt Date: 20100612
  Transmission Date: 20101027
  Serious: Yes (Death, Hospitalization, Other)
  Sender: FDA-Public Use
  Company Number: US-BAYER-201029382GPV

PATIENT
  Age: 55 Year
  Sex: Male

DRUGS (7)
  1. FLUDARABINE [Suspect]
     Indication: BONE MARROW CONDITIONING REGIMEN
  2. BUSULFAN [Suspect]
     Indication: CORD BLOOD TRANSPLANT THERAPY
  3. ANTI-THYMOCYTE GLOBULIN NOS [Suspect]
     Indication: CORD BLOOD TRANSPLANT THERAPY
     Dosage: ON PRE-TRANSPLANT DAYS -4 AND -3
  4. CYCLOSPORINE [Concomitant]
     Indication: PROPHYLAXIS AGAINST GRAFT VERSUS HOST DISEASE
  5. MYCOPHENOLATE MOFETIL [Concomitant]
     Indication: PROPHYLAXIS AGAINST GRAFT VERSUS HOST DISEASE
  6. IMMUNE GLOBULIN NOS [Concomitant]
     Indication: PROPHYLAXIS AGAINST GRAFT VERSUS HOST DISEASE
     Route: 042
  7. PREDNISONE [Concomitant]
     Indication: ACUTE GRAFT VERSUS HOST DISEASE IN INTESTINE

REACTIONS (3)
  - ACUTE GRAFT VERSUS HOST DISEASE IN INTESTINE [None]
  - CYTOMEGALOVIRUS INFECTION [None]
  - MENINGOENCEPHALITIS HERPETIC [None]
